FAERS Safety Report 7156415-4 (Version None)
Quarter: 2010Q4

REPORT INFORMATION
  Report Type: 
  Country: None (occurrence: None)
  Receive Date: 20101214
  Receipt Date: 20101206
  Transmission Date: 20110411
  Serious: Yes (Other)
  Sender: FDA-Public Use
  Company Number: US-ROCHE-746655

PATIENT
  Sex: Male

DRUGS (2)
  1. PEGASYS [Suspect]
     Indication: HEPATITIS C
     Dosage: FORM: PRE-FILLED SYRINGE
     Route: 058
     Dates: start: 20101203
  2. RIBAVARIN [Suspect]
     Indication: HEPATITIS C
     Dosage: DOVIDED DOSES
     Route: 048
     Dates: start: 20101203

REACTIONS (5)
  - NAUSEA [None]
  - PAIN [None]
  - PRURITUS [None]
  - RIB FRACTURE [None]
  - VOMITING [None]
